FAERS Safety Report 4421992-0 (Version None)
Quarter: 2004Q3

REPORT INFORMATION
  Report Type: 
  Country: None (occurrence: None)
  Receive Date: 20040804
  Receipt Date: 20040709
  Transmission Date: 20050211
  Serious: Yes (Hospitalization)
  Sender: FDA-Public Use
  Company Number: USA040772112

PATIENT
  Age: 71 Year
  Sex: Female

DRUGS (2)
  1. ZYPREXA [Suspect]
  2. OXYCODONE HCL [Concomitant]

REACTIONS (5)
  - ABNORMAL BEHAVIOUR [None]
  - DIZZINESS [None]
  - DRUG INTERACTION [None]
  - LOSS OF CONSCIOUSNESS [None]
  - RESTLESSNESS [None]
